FAERS Safety Report 18139322 (Version 1)
Quarter: 2020Q3

REPORT INFORMATION
  Report Type: Spontaneous
  Country: US (occurrence: US)
  Receive Date: 20200811
  Receipt Date: 20200811
  Transmission Date: 20201103
  Serious: No
  Sender: FDA-Public Use
  Company Number: None

PATIENT
  Sex: Female

DRUGS (1)
  1. HUMIRA [Suspect]
     Active Substance: ADALIMUMAB
     Indication: RHEUMATOID ARTHRITIS
     Route: 058
     Dates: start: 20200804

REACTIONS (6)
  - Eye pain [None]
  - Headache [None]
  - Abdominal pain upper [None]
  - Mood altered [None]
  - Feeling hot [None]
  - Sensory disturbance [None]
